FAERS Safety Report 8580560-X (Version None)
Quarter: 2012Q3

REPORT INFORMATION
  Report Type: 
  Country: None (occurrence: None)
  Receive Date: 20120808
  Receipt Date: 20120725
  Transmission Date: 20120928
  Serious: Yes (Other)
  Sender: FDA-Public Use
  Company Number: CHPA2012US016745

PATIENT
  Age: 65 Year
  Sex: Female

DRUGS (2)
  1. EXCEDRIN EXTRA STRENGTH TABLETS [Suspect]
     Indication: PAIN
     Dosage: 1/2 DF, UNK
     Route: 048
  2. EXCEDRIN EXTRA STRENGTH TABLETS [Suspect]
     Dosage: 1 DF, ONCE/SINGLE
     Route: 048

REACTIONS (7)
  - SCLERODERMA [None]
  - ENERGY INCREASED [None]
  - UNDERDOSE [None]
  - WRONG TECHNIQUE IN DRUG USAGE PROCESS [None]
  - DERMATOMYOSITIS [None]
  - PAIN [None]
  - INCORRECT DOSE ADMINISTERED [None]
